FAERS Safety Report 22113420 (Version 3)
Quarter: 2024Q3

REPORT INFORMATION
  Report Type: Spontaneous
  Country: JP (occurrence: None)
  Receive Date: 20230320
  Receipt Date: 20240813
  Transmission Date: 20241016
  Serious: No
  Sender: ASTRAZENECA
  Company Number: 2023A063709

PATIENT

DRUGS (1)
  1. LYNPARZA [Suspect]
     Active Substance: OLAPARIB
     Dosage: DOSE UNKNOWN
     Route: 048

REACTIONS (1)
  - No adverse event [Unknown]
